FAERS Safety Report 16700935 (Version 1)
Quarter: 2019Q3

REPORT INFORMATION
  Report Type: Spontaneous
  Country: HR (occurrence: HR)
  Receive Date: 20190814
  Receipt Date: 20190814
  Transmission Date: 20191004
  Serious: Yes (Other)
  Sender: FDA-Public Use
  Company Number: HR-TEVA-2019-HR-1091828

PATIENT
  Sex: Male

DRUGS (2)
  1. DIAZEPAM. [Suspect]
     Active Substance: DIAZEPAM
     Dosage: 100 MILLIGRAM
     Route: 048
     Dates: start: 20190416, end: 20190416
  2. RISSET TABLETE 1 MG [Suspect]
     Active Substance: RISPERIDONE
     Dosage: 20 MILLIGRAM
     Route: 048
     Dates: start: 20190416, end: 20190416

REACTIONS (3)
  - Suicide attempt [Unknown]
  - Somnolence [Unknown]
  - Intentional overdose [Unknown]

NARRATIVE: CASE EVENT DATE: 20190416
